FAERS Safety Report 9895465 (Version 1)
Quarter: 2014Q1

REPORT INFORMATION
  Report Type: Spontaneous
  Country: US (occurrence: US)
  Receive Date: 20140213
  Receipt Date: 20140213
  Transmission Date: 20141002
  Serious: No
  Sender: FDA-Public Use
  Company Number: US-BRISTOL-MYERS SQUIBB COMPANY-18711408

PATIENT
  Age: 63 Year
  Sex: Female
  Weight: 46.71 kg

DRUGS (16)
  1. ABATACEPT SUBQ INJECTION 125MG/ML [Suspect]
     Indication: RHEUMATOID ARTHRITIS
     Route: 058
     Dates: start: 20120925
  2. SYNTHROID [Concomitant]
  3. CYMBALTA [Concomitant]
  4. MORPHINE [Concomitant]
     Dosage: ER
  5. CLONAZEPAM [Concomitant]
  6. FOLIC ACID [Concomitant]
  7. VICODIN [Concomitant]
  8. MIRTAZAPINE [Concomitant]
  9. ZINC [Concomitant]
  10. VITAMIN B1 [Concomitant]
  11. VITAMIN B6 [Concomitant]
  12. VITAMIN B12 [Concomitant]
  13. VITAMIN C [Concomitant]
  14. VITAMIN E [Concomitant]
  15. VITAMIN A [Concomitant]
  16. ECHINACEA [Concomitant]

REACTIONS (2)
  - Rash pruritic [Unknown]
  - Fatigue [Unknown]
